FAERS Safety Report 6725472-9 (Version None)
Quarter: 2010Q2

REPORT INFORMATION
  Report Type: 
  Country: None (occurrence: None)
  Receive Date: 20100513
  Receipt Date: 20100513
  Transmission Date: 20101027
  Serious: Yes (Other)
  Sender: FDA-Public Use
  Company Number: None

PATIENT
  Age: 44 Year
  Sex: Female
  Weight: 56.6996 kg

DRUGS (4)
  1. NEURONTIN [Suspect]
     Indication: NEURALGIA
     Dosage: 300MG 1 @ NT. ORAL
     Route: 048
     Dates: start: 20100509, end: 20100510
  2. NEURONTIN [Suspect]
     Indication: PAIN IN EXTREMITY
     Dosage: 300MG 1 @ NT. ORAL
     Route: 048
     Dates: start: 20100509, end: 20100510
  3. NEURONTIN [Suspect]
     Indication: NEURALGIA
     Dosage: 300MG 1 @ NT. ORAL
     Route: 048
     Dates: start: 20100506
  4. NEURONTIN [Suspect]
     Indication: PAIN IN EXTREMITY
     Dosage: 300MG 1 @ NT. ORAL
     Route: 048
     Dates: start: 20100506

REACTIONS (3)
  - DYSURIA [None]
  - ECONOMIC PROBLEM [None]
  - URINE OUTPUT DECREASED [None]
